FAERS Safety Report 7308830 (Version 3)
Quarter: 2012Q4

REPORT INFORMATION
  Report Type: Report from Study
  Country: DE (occurrence: JP)
  Receive Date: 20100308
  Receipt Date: 20121213
  Transmission Date: 20130627
  Serious: Yes (Death, Hospitalization)
  Sender: FDA-Public Use
  Company Number: JP-BRISTOL-MYERS SQUIBB COMPANY-14459556

PATIENT
  Age: 49 Year
  Sex: Female
  Weight: 58.65 kg

DRUGS (7)
  1. ERBITUX SOLN FOR INF 5MG/ML [Suspect]
     Indication: COLON CANCER
     Dosage: Initiated on 20Nov08:400mg/m2,1inonce;02Dec08:250mg/m2,IV,
16dec08 1inonce;4thinf:200mg/m21in1wk.
     Route: 042
     Dates: start: 20081209, end: 20081216
  2. IRINOTECAN HCL [Concomitant]
     Indication: COLON CANCER
     Route: 042
     Dates: start: 20081120, end: 20081209
  3. 5-FU [Concomitant]
     Indication: COLORECTAL CANCER RECURRENT
     Dosage: IV,3600mg/m2 as cont inf:2 d,1 in 2 wk;by 600mg/m2 1in2 wk
20Nov08-
9-11Dec08
20Nov-9Dec08
     Route: 040
     Dates: start: 20081120, end: 20081211
  4. LEUCOVORIN [Concomitant]
     Indication: COLORECTAL CANCER RECURRENT
     Route: 042
     Dates: start: 20081120, end: 20081209
  5. CHLOR-TRIMETON [Concomitant]
     Indication: PREMEDICATION
     Dosage: 1.4286mg
     Route: 042
     Dates: start: 20081120, end: 20081216
  6. DECADRON [Concomitant]
     Indication: PREMEDICATION
     Dosage: 1.1429 mg
     Route: 042
     Dates: start: 20081120, end: 20081216
  7. KYTRIL [Concomitant]
     Indication: ANTIEMETIC SUPPORTIVE CARE
     Dosage: 0.4286mg
     Route: 042
     Dates: start: 20081120, end: 20081120

REACTIONS (4)
  - Pulmonary embolism [Fatal]
  - Ventricular arrhythmia [Not Recovered/Not Resolved]
  - Device related infection [Not Recovered/Not Resolved]
  - Pyrexia [Not Recovered/Not Resolved]
